FAERS Safety Report 7384921-6 (Version None)
Quarter: 2011Q1

REPORT INFORMATION
  Report Type: 
  Country: None (occurrence: None)
  Receive Date: 20110323
  Receipt Date: 20110308
  Transmission Date: 20110831
  Serious: Yes (Other)
  Sender: FDA-Public Use
  Company Number: 20100402

PATIENT
  Age: 59 Year
  Sex: Male

DRUGS (15)
  1. GLYBURIDE [Concomitant]
  2. RINGER'S LACTATE SOLUTION [Concomitant]
  3. VECURONIUM BROMIDE [Concomitant]
  4. NITROUS OXIDE [Concomitant]
  5. VERAPAMIL [Concomitant]
  6. PAROXETINE [Concomitant]
  7. METHYLENE BLUE INJECTION, USP (0301-10) 1% [Suspect]
     Dosage: 700 MG INTRAVENOUS
     Route: 042
  8. FUROSEMIDE [Concomitant]
  9. METFORMIN [Concomitant]
  10. SIMVASTATIN [Concomitant]
  11. PROPOFOL [Concomitant]
  12. SUCCINYLCHOLINE CHLORIDE [Concomitant]
  13. SEVOFLURANE [Concomitant]
  14. RABEPRAZOLE SODIUM [Concomitant]
  15. POTASSIUM [Concomitant]

REACTIONS (4)
  - DISORIENTATION [None]
  - APHASIA [None]
  - CONFUSION POSTOPERATIVE [None]
  - SPEECH DISORDER [None]
